FAERS Safety Report 18303600 (Version 3)
Quarter: 2020Q4

REPORT INFORMATION
  Report Type: Report from Study
  Country: US (occurrence: US)
  Receive Date: 20200923
  Receipt Date: 20201022
  Transmission Date: 20210113
  Serious: Yes (Hospitalization, Other)
  Sender: FDA-Public Use
  Company Number: US-JNJFOC-20200901056

PATIENT
  Age: 27 Year
  Sex: Female
  Weight: 112.14 kg

DRUGS (4)
  1. VELETRI [Suspect]
     Active Substance: EPOPROSTENOL
     Indication: PULMONARY ARTERIAL HYPERTENSION
     Route: 042
  2. LASIX [Suspect]
     Active Substance: FUROSEMIDE
  3. VELETRI [Suspect]
     Active Substance: EPOPROSTENOL
     Route: 042
  4. VELETRI [Suspect]
     Active Substance: EPOPROSTENOL
     Route: 042

REACTIONS (26)
  - Pulmonary oedema [Unknown]
  - Swelling [Unknown]
  - Localised oedema [Unknown]
  - Back pain [Unknown]
  - Paranasal sinus discomfort [Unknown]
  - Nausea [Unknown]
  - Sinusitis [Unknown]
  - Facial pain [Unknown]
  - Cough [Unknown]
  - Skin irritation [Unknown]
  - Fall [Recovered/Resolved]
  - Headache [Unknown]
  - Fluid retention [Unknown]
  - Syncope [Unknown]
  - Pain in jaw [Unknown]
  - Flushing [Unknown]
  - Dermatitis contact [Unknown]
  - Pleural effusion [Unknown]
  - Diarrhoea [Unknown]
  - Dyspnoea [Unknown]
  - Vomiting [Unknown]
  - Rash [Unknown]
  - Catheter placement [Recovered/Resolved]
  - Sinus operation [Unknown]
  - Insomnia [Unknown]
  - Pain [Unknown]

NARRATIVE: CASE EVENT DATE: 202008
